FAERS Safety Report 17806123 (Version 1)
Quarter: 2020Q2

REPORT INFORMATION
  Report Type: Spontaneous
  Country: FR (occurrence: FR)
  Receive Date: 20200520
  Receipt Date: 20200520
  Transmission Date: 20200714
  Serious: Yes (Life-Threatening)
  Sender: FDA-Public Use
  Company Number: FR-TEVA-2020-FR-1236285

PATIENT
  Age: 51 Year
  Sex: Female
  Weight: 70 kg

DRUGS (2)
  1. TIAPRIDAL [Interacting]
     Active Substance: TIAPRIDE HYDROCHLORIDE
     Indication: PSYCHOTIC DISORDER
     Route: 065
  2. CHLORHYDRATE D^HYDROXYZINE [Suspect]
     Active Substance: HYDROXYZINE HYDROCHLORIDE
     Indication: PRURITUS
     Route: 041
     Dates: start: 20200423, end: 20200423

REACTIONS (2)
  - Drug interaction [Unknown]
  - Cardiac arrest [Recovering/Resolving]

NARRATIVE: CASE EVENT DATE: 20200424
